FAERS Safety Report 6176891-3 (Version None)
Quarter: 2009Q2

REPORT INFORMATION
  Report Type: 
  Country: None (occurrence: None)
  Receive Date: 20090501
  Receipt Date: 20081203
  Transmission Date: 20091009
  Serious: Yes (Hospitalization)
  Sender: FDA-Public Use
  Company Number: US-ALEXION-A200800313

PATIENT

DRUGS (1)
  1. SOLIRIS [Suspect]
     Dosage: UNK, UNK

REACTIONS (1)
  - SYPHILIS [None]
